FAERS Safety Report 7558132-5 (Version None)
Quarter: 2011Q2

REPORT INFORMATION
  Report Type: 
  Country: None (occurrence: None)
  Receive Date: 20110620
  Receipt Date: 20110615
  Transmission Date: 20111010
  Serious: Yes (Death)
  Sender: FDA-Public Use
  Company Number: US-UCBSA-035560

PATIENT
  Sex: Male

DRUGS (10)
  1. FLUTICASONE PROPIONATE [Concomitant]
     Dosage: 50 MCG AS NEEDED
     Route: 045
  2. STRATTERA [Concomitant]
  3. VICODIN [Concomitant]
     Dosage: 1-2 EVERY 4-6 HOURS AS NEEDED
  4. DILANTIN [Concomitant]
     Dosage: 100 MG, 2 IN MORNING AND 3 AT HOUR OF SLEEP
     Route: 048
  5. LAMOTRIGINE [Concomitant]
  6. AMITRIPTYLINE HCL [Concomitant]
     Dosage: 25 MG 6 TABLETS AT HOUR OF SLEEP
     Route: 048
  7. FLUOXETINE HCL [Concomitant]
     Dosage: 40 MG 3 CAPSULES PER DAY
     Route: 048
  8. LACOSAMIDE [Suspect]
     Indication: CONVULSION
     Dates: start: 20101018, end: 20110312
  9. LORAZEPAM [Concomitant]
     Indication: CONVULSION
     Dosage: 1  AS NEEDED
     Route: 048
  10. CIALIS [Concomitant]
     Dosage: AS NEEDED

REACTIONS (1)
  - DEATH [None]
